FAERS Safety Report 24627468 (Version 1)
Quarter: 2024Q4

REPORT INFORMATION
  Report Type: Spontaneous
  Country: SK (occurrence: SK)
  Receive Date: 20241116
  Receipt Date: 20241116
  Transmission Date: 20250115
  Serious: Yes (Other)
  Sender: ACCORD
  Company Number: SK-EMA-DD-20241017-7482661-143317

PATIENT
  Age: 66 Year
  Sex: Male

DRUGS (1)
  1. DOCETAXEL [Suspect]
     Active Substance: DOCETAXEL
     Indication: Skin angiosarcoma
     Dosage: UNK
     Dates: start: 201903

REACTIONS (8)
  - Neutropenia [Unknown]
  - Pulmonary oedema [Unknown]
  - Haemoptysis [Unknown]
  - Leukopenia [Unknown]
  - Pulmonary alveolar haemorrhage [Unknown]
  - Condition aggravated [Unknown]
  - Thrombocytopenia [Unknown]
  - Anaemia [Unknown]

NARRATIVE: CASE EVENT DATE: 20190401
